FAERS Safety Report 15425213 (Version 2)
Quarter: 2018Q4

REPORT INFORMATION
  Report Type: Spontaneous
  Country: US (occurrence: US)
  Receive Date: 20180925
  Receipt Date: 20181004
  Transmission Date: 20190204
  Serious: Yes (Other)
  Sender: FDA-Public Use
  Company Number: US-ASTRAZENECA-2018SF18460

PATIENT
  Sex: Female

DRUGS (1)
  1. LYNPARZA [Suspect]
     Active Substance: OLAPARIB
     Indication: OVARIAN CANCER
     Route: 048
     Dates: start: 2016, end: 201807

REACTIONS (7)
  - Malignant neoplasm progression [Unknown]
  - Asthenia [Unknown]
  - Drug ineffective [Unknown]
  - Nausea [Unknown]
  - Weight decreased [Unknown]
  - Decreased appetite [Unknown]
  - Dyspepsia [Unknown]
